FAERS Safety Report 12408684 (Version 2)
Quarter: 2016Q2

REPORT INFORMATION
  Report Type: Spontaneous
  Country: IN (occurrence: IN)
  Receive Date: 20160526
  Receipt Date: 20160530
  Transmission Date: 20160815
  Serious: Yes (Other)
  Sender: FDA-Public Use
  Company Number: IN-MYLANLABS-2016M1021607

PATIENT

DRUGS (2)
  1. FORMOTEROL [Concomitant]
     Active Substance: FORMOTEROL
     Indication: SILICOSIS
     Route: 064
  2. BUDESONIDE. [Suspect]
     Active Substance: BUDESONIDE
     Indication: SILICOSIS
     Route: 064

REACTIONS (3)
  - Small for dates baby [Unknown]
  - Foetal growth restriction [Unknown]
  - Foetal exposure during pregnancy [Recovered/Resolved]
